FAERS Safety Report 9639754 (Version 1)
Quarter: 2013Q4

REPORT INFORMATION
  Report Type: Spontaneous
  Country: US (occurrence: None)
  Receive Date: 20131021
  Receipt Date: 20131021
  Transmission Date: 20140711
  Serious: Yes (Disabling, Other)
  Sender: FDA-Public Use
  Company Number: None

PATIENT
  Age: 58 Year
  Sex: Female
  Weight: 65.77 kg

DRUGS (1)
  1. PROLIA [Suspect]
     Indication: OSTEOPOROSIS
     Dosage: 60 MG ONCE DAILY INTO THE MUSCLE
     Route: 030
     Dates: start: 20130527, end: 20131018

REACTIONS (6)
  - Pain in jaw [None]
  - Ear pain [None]
  - Endodontic procedure [None]
  - Gingivitis [None]
  - Impaired healing [None]
  - Tooth extraction [None]
